FAERS Safety Report 22961873 (Version 3)
Quarter: 2024Q1

REPORT INFORMATION
  Report Type: Spontaneous
  Country: US (occurrence: US)
  Receive Date: 20230920
  Receipt Date: 20240112
  Transmission Date: 20240410
  Serious: Yes (Hospitalization, Other)
  Sender: FDA-Public Use
  Company Number: US-ABBVIE-5414203

PATIENT
  Sex: Male

DRUGS (16)
  1. IMBRUVICA [Suspect]
     Active Substance: IBRUTINIB
     Indication: Waldenstrom^s macroglobulinaemia stage IV
     Dosage: 1 TABLET?FORM STRENGTH: 420 MILLIGRAM
     Route: 048
     Dates: start: 20220820
  2. IMBRUVICA [Suspect]
     Active Substance: IBRUTINIB
     Indication: Waldenstrom^s macroglobulinaemia stage IV
     Dosage: FORM STRENGTH: 420 MILLIGRAM
     Route: 048
     Dates: start: 20230116
  3. SODIUM CHLORIDE [Concomitant]
     Active Substance: SODIUM CHLORIDE
     Indication: Product used for unknown indication
     Dosage: 0.9% INJECTION 10-60 ML?FORM STRENGTH: 0.9 PERCENT
     Dates: start: 20180517
  4. AMLODIPINE BESYLATE [Concomitant]
     Active Substance: AMLODIPINE BESYLATE
     Indication: Blood pressure measurement
     Dosage: FORM STRENGTH: 5 MILLIGRAM
  5. PROLIA [Concomitant]
     Active Substance: DENOSUMAB
     Indication: Product used for unknown indication
     Dosage: 60 MG/ML, DOSE- 1 ML (60 MG)?INJECT IN UPPER ARM, UPPER THIGH, OR ABDOMEN?DENOSUMAB
     Dates: start: 20230710
  6. LIDOCAINE [Concomitant]
     Active Substance: LIDOCAINE
     Indication: Product used for unknown indication
     Dosage: APPLY 2 PATCHES TO SKIN DAILY. LEAVE ON FOR UP TO 12 HOURS IN A 24 HOUR PERIOD, THEN REMOVE?(ASPE...
     Dates: start: 20230603
  7. CYCLOBENZAPRINE [Concomitant]
     Active Substance: CYCLOBENZAPRINE
     Indication: Product used for unknown indication
     Dosage: TIME INTERVAL: 0.33333333 DAYS: AS NEEDED?(FLEXERIL)?FORM STRENGTH: 5 MILLIGRAM
     Dates: start: 20230703
  8. SILDENAFIL [Concomitant]
     Active Substance: SILDENAFIL
     Indication: Erectile dysfunction
     Dosage: TAKE 1-2 TABLETS (20-40 MG) BY MOUTH DAILY AS NEEDED? (REVATIO)?FORM STRENGTH: 20 MILLIGRAM
     Dates: start: 20230221
  9. AMLODIPINE [Concomitant]
     Active Substance: AMLODIPINE BESYLATE
     Indication: Blood pressure measurement
     Dosage: AMLODIPINE BESYLATE/ (NORVASC)?FORM STRENGTH: 5 MILLIGRAM
     Dates: start: 20230919
  10. FERROUS SULFATE [Concomitant]
     Active Substance: FERROUS SULFATE
     Indication: Product used for unknown indication
     Dosage: 325 (65 FE) MG TABLET?FORM STRENGTH: 325 MILLIGRAM
     Dates: start: 20220711
  11. NALOXONE [Concomitant]
     Active Substance: NALOXONE
     Indication: Product used for unknown indication
     Dosage: (NARCAN)  4 MG/0.1ML NASAL SPRAY?FORM STRENGTH: 4 MILLIGRAM?FREQUENCY TEXT: 1 SPRAY INTO ONE NOST...
     Dates: start: 20230303
  12. ALLOPURINOL [Concomitant]
     Active Substance: ALLOPURINOL
     Indication: Gout
     Dosage: (ZYLOPRIM)?300MG DAILY FOR GOUT (NOT FOR WM). CONTINUE Q3 MONTH?FORM STRENGTH: 300 MILLIGRAM
     Dates: start: 20230816
  13. ACETAMINOPHEN [Concomitant]
     Active Substance: ACETAMINOPHEN
     Indication: Pain
     Dosage: TIME INTERVAL: 0.33333333 DAYS: (TYLENOL)?FORM STRENGTH: 500 MILLIGRAM
     Dates: start: 20220606
  14. FOSAMAX [Concomitant]
     Active Substance: ALENDRONATE SODIUM
     Indication: Product used for unknown indication
  15. DILAUDID [Concomitant]
     Active Substance: HYDROMORPHONE HYDROCHLORIDE
     Indication: Product used for unknown indication
  16. AQUAPHOR [Concomitant]
     Active Substance: PETROLATUM
     Indication: Product used for unknown indication

REACTIONS (20)
  - Spinal compression fracture [Recovering/Resolving]
  - Weight increased [Unknown]
  - Hypertension [Recovered/Resolved]
  - Hypotension [Not Recovered/Not Resolved]
  - Hypotension [Recovered/Resolved]
  - Hypertension [Not Recovered/Not Resolved]
  - Sneezing [Unknown]
  - Nasopharyngitis [Unknown]
  - Osteoporosis [Unknown]
  - Therapeutic product effect incomplete [Unknown]
  - Discomfort [Not Recovered/Not Resolved]
  - Insomnia [Unknown]
  - Peripheral swelling [Unknown]
  - Epistaxis [Unknown]
  - Lymphadenopathy [Unknown]
  - Ultrasound abdomen abnormal [Unknown]
  - Back pain [Recovering/Resolving]
  - Asthenia [Not Recovered/Not Resolved]
  - Hypertension [Not Recovered/Not Resolved]
  - Oedema peripheral [Unknown]

NARRATIVE: CASE EVENT DATE: 20230101
